FAERS Safety Report 25351829 (Version 2)
Quarter: 2025Q2

REPORT INFORMATION
  Report Type: Report from Study
  Country: US (occurrence: US)
  Receive Date: 20250523
  Receipt Date: 20250619
  Transmission Date: 20250716
  Serious: No
  Sender: SUNOVION
  Company Number: US-SMPA-2025SPA005408AA

PATIENT

DRUGS (2)
  1. ORGOVYX [Suspect]
     Active Substance: RELUGOLIX
     Indication: Prostate cancer
     Route: 048
     Dates: start: 20250404, end: 20250404
  2. ORGOVYX [Suspect]
     Active Substance: RELUGOLIX
     Dosage: 120 MG, QD
     Route: 048
     Dates: start: 20250405

REACTIONS (6)
  - Muscle spasms [Unknown]
  - Abdominal pain upper [Unknown]
  - Fatigue [Unknown]
  - Headache [Unknown]
  - Hot flush [Unknown]
  - Product dose omission issue [Unknown]
